FAERS Safety Report 7711648-0 (Version None)
Quarter: 2011Q3

REPORT INFORMATION
  Report Type: 
  Country: None (occurrence: None)
  Receive Date: 20110826
  Receipt Date: 20110728
  Transmission Date: 20111222
  Serious: No
  Sender: FDA-Public Use
  Company Number: US-BRISTOL-MYERS SQUIBB COMPANY-15864093

PATIENT
  Age: 73 Year
  Sex: Female

DRUGS (7)
  1. FUROSEMIDE [Concomitant]
  2. MULTI-VITAMIN [Concomitant]
  3. OMEPRAZOLE [Concomitant]
  4. EVISTA [Concomitant]
  5. ONGLYZA [Suspect]
     Indication: BLOOD GLUCOSE INCREASED
     Dates: start: 20110611
  6. METFORMIN HCL [Concomitant]
     Dosage: METFORMIN ER BEFORE LUNCH AND DINNER
  7. STARLIX [Concomitant]
     Dosage: BEFORE BREAKFAST, LUNCH AND DINNER

REACTIONS (1)
  - DRUG INEFFECTIVE [None]
